FAERS Safety Report 8180655-9 (Version None)
Quarter: 2012Q1

REPORT INFORMATION
  Report Type: 
  Country: None (occurrence: None)
  Receive Date: 20120301
  Receipt Date: 20120301
  Transmission Date: 20120608
  Serious: Yes (Other)
  Sender: FDA-Public Use
  Company Number: None

PATIENT
  Sex: Male
  Weight: 78.0187 kg

DRUGS (2)
  1. AVODART [Suspect]
     Indication: PROSTATOMEGALY
     Dosage: 30 AVODART ONE DAILY ORAL
     Route: 048
  2. LEVAQUIN [Suspect]
     Indication: INFECTION
     Dosage: 7 LEVAQUIN ONE DAILY ORAL
     Route: 048

REACTIONS (8)
  - BALANCE DISORDER [None]
  - MYALGIA [None]
  - OEDEMA PERIPHERAL [None]
  - FALL [None]
  - BREAST PAIN [None]
  - ARTHRALGIA [None]
  - BREAST ENLARGEMENT [None]
  - SENSORY LOSS [None]
